FAERS Safety Report 11829901 (Version 1)
Quarter: 2015Q4

REPORT INFORMATION
  Report Type: Spontaneous
  Country: UA (occurrence: UA)
  Receive Date: 20151212
  Receipt Date: 20151212
  Transmission Date: 20160305
  Serious: Yes (Life-Threatening, Other)
  Sender: FDA-Public Use
  Company Number: UA-ASTRAZENECA-2015SF18834

PATIENT
  Age: 44 Year
  Sex: Male
  Weight: 140 kg

DRUGS (6)
  1. BRILINTA [Suspect]
     Active Substance: TICAGRELOR
     Indication: MYOCARDIAL INFARCTION
     Route: 048
     Dates: start: 20151113, end: 20151116
  2. HEPARIN [Concomitant]
     Active Substance: HEPARIN SODIUM
     Dosage: 1.4 X 2 TIMES A DAY
     Dates: start: 20151105
  3. PLAVIX [Concomitant]
     Active Substance: CLOPIDOGREL BISULFATE
  4. ASPIRIN. [Concomitant]
     Active Substance: ASPIRIN
     Dates: start: 20151105
  5. CLOPIDOGREL [Concomitant]
     Active Substance: CLOPIDOGREL BISULFATE
     Dates: start: 20151105
  6. CLEXAN [Concomitant]
     Dosage: 1.4 X 2 TIMES A DAY
     Dates: start: 20151105

REACTIONS (3)
  - Therapy cessation [Unknown]
  - Haemorrhagic stroke [Recovering/Resolving]
  - Acute myocardial infarction [Unknown]

NARRATIVE: CASE EVENT DATE: 20151115
